FAERS Safety Report 9734368 (Version 3)
Quarter: 2014Q1

REPORT INFORMATION
  Report Type: Report from Study
  Country: CA (occurrence: CA)
  Receive Date: 20131206
  Receipt Date: 20140205
  Transmission Date: 20141002
  Serious: Yes (Hospitalization, Other)
  Sender: FDA-Public Use
  Company Number: CA-ROCHE-773871

PATIENT
  Age: 60 Year
  Sex: Male
  Weight: 74 kg

DRUGS (15)
  1. RITUXAN [Suspect]
     Indication: AUTOIMMUNE HAEMOLYTIC ANAEMIA
     Dosage: DATE OF PREVIOS DOSE ADMINISTERED: 23/JUL/2013.
     Route: 042
     Dates: start: 20061212, end: 20110120
  2. RITUXAN [Suspect]
     Indication: IMMUNE THROMBOCYTOPENIC PURPURA
  3. RITUXAN [Suspect]
     Indication: THYMOMA
  4. RITUXAN [Suspect]
     Indication: MYASTHENIA GRAVIS
  5. RITUXAN [Suspect]
     Indication: ANTIPHOSPHOLIPID SYNDROME
  6. CELLCEPT [Suspect]
     Indication: PRODUCT USED FOR UNKNOWN INDICATION
     Route: 065
  7. RANITIDINE [Concomitant]
  8. PULMICORT [Concomitant]
  9. ATROVENT [Concomitant]
  10. SPIRIVA [Concomitant]
  11. SEPTRA STUDY DRUG [Concomitant]
  12. PREDNISONE [Concomitant]
  13. ACETAMINOPHEN [Concomitant]
     Indication: PREMEDICATION
     Route: 048
  14. DIPHENHYDRAMINE HYDROCHLORIDE [Concomitant]
     Indication: PREMEDICATION
     Route: 048
  15. METHYLPREDNISOLONE [Concomitant]
     Indication: PREMEDICATION
     Route: 042

REACTIONS (23)
  - Pneumonia [Recovering/Resolving]
  - Pneumonia [Unknown]
  - Splenomegaly [Not Recovered/Not Resolved]
  - Syncope [Unknown]
  - Heart rate decreased [Unknown]
  - Hypotension [Recovering/Resolving]
  - Concussion [Unknown]
  - Subdural haematoma [Unknown]
  - Dyspnoea [Recovering/Resolving]
  - Speech disorder [Recovering/Resolving]
  - Rotator cuff syndrome [Unknown]
  - Fall [Unknown]
  - Upper respiratory tract infection [Not Recovered/Not Resolved]
  - Bronchitis [Recovered/Resolved]
  - Nasopharyngitis [Not Recovered/Not Resolved]
  - Heart rate increased [Not Recovered/Not Resolved]
  - Vision blurred [Not Recovered/Not Resolved]
  - Platelet count decreased [Not Recovered/Not Resolved]
  - White blood cell count decreased [Not Recovered/Not Resolved]
  - Off label use [Unknown]
  - Implant site pain [Unknown]
  - Herpes zoster [Recovered/Resolved]
  - Disturbance in attention [Unknown]
